FAERS Safety Report 5933057-7 (Version None)
Quarter: 2008Q4

REPORT INFORMATION
  Report Type: 
  Country: None (occurrence: None)
  Receive Date: 20081028
  Receipt Date: 20081014
  Transmission Date: 20090506
  Serious: Yes (Life-Threatening, Hospitalization)
  Sender: FDA-Public Use
  Company Number: JP-PURDUE-MAG_2008_0000736

PATIENT
  Age: 65 Year
  Sex: Female
  Weight: 58 kg

DRUGS (16)
  1. THEOPHYLLINE [Suspect]
     Indication: ASTHMA
     Dosage: 2 TABLET, DAILY
     Route: 048
     Dates: end: 20080801
  2. MEPTIN [Suspect]
     Indication: ASTHMA
     Dosage: 0 TO 40 MCG- PRN
     Route: 055
     Dates: start: 20080730
  3. MEPTIN [Suspect]
     Dosage: 30 MCG TO 150 MCG- PRN
     Route: 055
     Dates: end: 20080729
  4. MEVALOTIN [Suspect]
     Indication: HYPERLIPIDAEMIA
     Dosage: .5 TABLET, DAILY
     Route: 048
     Dates: end: 20080729
  5. SEREVENT                           /00954701/ [Suspect]
     Indication: ASTHMA
     Dosage: 100 MCG, DAILY
     Route: 055
     Dates: start: 20080730
  6. SEREVENT                           /00954701/ [Suspect]
     Dosage: 200 MCG, DAILY
     Route: 055
     Dates: end: 20080729
  7. FLUTICASONE PROPIONATE [Concomitant]
     Indication: ASTHMA
     Dosage: 1200 MCG, DAILY
     Route: 055
  8. CALCIUM LACTATE [Concomitant]
     Indication: HYPOCALCAEMIA
     Dosage: 2 GRAM, DAILY
     Route: 048
  9. PREDNISOLONE [Concomitant]
     Indication: ASTHMA
     Dosage: 5 MCG, DAILY
     Route: 065
  10. MAGNESIUM OXIDE [Concomitant]
     Indication: CONSTIPATION
     Dosage: 1.98 GRAM, DAILY
     Route: 048
  11. AMBROXOL HYDROCHLORIDE [Concomitant]
     Indication: DRUG USE FOR UNKNOWN INDICATION
     Dosage: 45 MG, DAILY
     Route: 048
  12. FAMOTIDINE [Concomitant]
     Indication: GASTRITIS
     Dosage: 2 TABLET, DAILY
     Route: 048
  13. FEXOFENADINE HYDROCHLORIDE [Concomitant]
     Indication: ASTHMA
     Dosage: 120 MG, DAILY
     Route: 048
  14. MONTELUKAST SODIUM [Concomitant]
     Indication: ASTHMA
     Dosage: 10 MG, DAILY
     Route: 048
  15. POTASSIUM CITRATE W/SODIUM CITRATE [Concomitant]
     Indication: HYPERURICAEMIA
     Dosage: 1 TABLET, DAILY
     Route: 048
  16. BENZBROMARONE [Concomitant]
     Indication: HYPERURICAEMIA
     Dosage: 1 TABLET, DAILY
     Route: 048

REACTIONS (2)
  - HYPOKALAEMIA [None]
  - RHABDOMYOLYSIS [None]
